FAERS Safety Report 21895726 (Version 1)
Quarter: 2023Q1

REPORT INFORMATION
  Report Type: Spontaneous
  Country: US (occurrence: US)
  Receive Date: 20230123
  Receipt Date: 20230123
  Transmission Date: 20230417
  Serious: No
  Sender: FDA-Public Use
  Company Number: US-JNJFOC-20230131611

PATIENT
  Age: 55 Year
  Sex: Female

DRUGS (6)
  1. IBUPROFEN [Suspect]
     Active Substance: IBUPROFEN
     Indication: Product used for unknown indication
     Route: 065
  2. IMBRUVICA [Suspect]
     Active Substance: IBRUTINIB
     Indication: B-cell small lymphocytic lymphoma
     Route: 048
  3. IMBRUVICA [Suspect]
     Active Substance: IBRUTINIB
     Route: 048
  4. MODERNA COVID-19 VACCINE [Concomitant]
     Active Substance: ELASOMERAN
     Indication: COVID-19 immunisation
     Dosage: FIRST DOSE, ONE IN ONCE
     Route: 030
     Dates: start: 20210203, end: 20210203
  5. MODERNA COVID-19 VACCINE [Concomitant]
     Active Substance: ELASOMERAN
     Dosage: SECOND DOSE, ONE IN ONCE
     Route: 030
     Dates: start: 20210511, end: 20210511
  6. MODERNA COVID-19 VACCINE [Concomitant]
     Active Substance: ELASOMERAN
     Dosage: BOOSTER DOSE, ONE IN ONCE
     Route: 030
     Dates: start: 20211116, end: 20211116

REACTIONS (8)
  - Tinnitus [Not Recovered/Not Resolved]
  - Visual impairment [Unknown]
  - Palpitations [Recovered/Resolved]
  - Ophthalmic migraine [Unknown]
  - Headache [Unknown]
  - Malaise [Unknown]
  - Nausea [Recovered/Resolved]
  - Vomiting [Recovered/Resolved]

NARRATIVE: CASE EVENT DATE: 20220501
